FAERS Safety Report 22652152 (Version 2)
Quarter: 2023Q2

REPORT INFORMATION
  Report Type: Spontaneous
  Country: US (occurrence: US)
  Receive Date: 20230628
  Receipt Date: 20230630
  Transmission Date: 20230721
  Serious: Yes (Death)
  Sender: FDA-Public Use
  Company Number: US-KARYOPHARM-2023KPT001421

PATIENT

DRUGS (27)
  1. XPOVIO [Suspect]
     Active Substance: SELINEXOR
     Indication: Plasma cell myeloma
     Dosage: 80 MG, 2X/WEEK
     Route: 048
     Dates: start: 20230525
  2. ALPRAZOLAM [Concomitant]
     Active Substance: ALPRAZOLAM
  3. AMOXICILLIN\CLAVULANATE POTASSIUM [Concomitant]
     Active Substance: AMOXICILLIN\CLAVULANATE POTASSIUM
  4. AVELOX [Concomitant]
     Active Substance: MOXIFLOXACIN HYDROCHLORIDE
  5. AZITHROMYCIN [Concomitant]
     Active Substance: AZITHROMYCIN
  6. BACTRIM DS [Concomitant]
     Active Substance: SULFAMETHOXAZOLE\TRIMETHOPRIM
  7. BENZONATATE [Concomitant]
     Active Substance: BENZONATATE
  8. CIPROFLOXACIN [Concomitant]
     Active Substance: CIPROFLOXACIN
  9. CYCLOBENZAPRINE [Concomitant]
     Active Substance: CYCLOBENZAPRINE
  10. DARZALEX [Concomitant]
     Active Substance: DARATUMUMAB
  11. DEXAMETHASONE [Concomitant]
     Active Substance: DEXAMETHASONE
  12. DEXTROAMPHETAMINE HYDROCHLORIDE [Concomitant]
     Active Substance: DEXTROAMPHETAMINE HYDROCHLORIDE
  13. ELIQUIS [Concomitant]
     Active Substance: APIXABAN
  14. EMPLICITI [Concomitant]
     Active Substance: ELOTUZUMAB
  15. ENDOCET [Concomitant]
     Active Substance: ACETAMINOPHEN\OXYCODONE HYDROCHLORIDE
  16. FAMOTIDINE [Concomitant]
     Active Substance: FAMOTIDINE
  17. KYPROLIS [Concomitant]
     Active Substance: CARFILZOMIB
  18. LIDOCAINE\PRILOCAINE [Concomitant]
     Active Substance: LIDOCAINE\PRILOCAINE
  19. LUNESTA [Concomitant]
     Active Substance: ESZOPICLONE
  20. MEGESTROL [Concomitant]
     Active Substance: MEGESTROL
  21. MIRTAZAPINE [Concomitant]
     Active Substance: MIRTAZAPINE
  22. PREDNISONE [Concomitant]
     Active Substance: PREDNISONE
  23. PROCHLORPERAZINE [Concomitant]
     Active Substance: PROCHLORPERAZINE
  24. SINGULAIR [Concomitant]
     Active Substance: MONTELUKAST SODIUM
  25. VALACYCLOVIR HYDROCHLORIDE [Concomitant]
     Active Substance: VALACYCLOVIR HYDROCHLORIDE
  26. ZOFRAN [Concomitant]
     Active Substance: ONDANSETRON HYDROCHLORIDE
  27. FUROSEMIDE [Concomitant]
     Active Substance: FUROSEMIDE

REACTIONS (4)
  - Death [Fatal]
  - Insomnia [Unknown]
  - Fatigue [Unknown]
  - Nausea [Unknown]

NARRATIVE: CASE EVENT DATE: 20230501
